FAERS Safety Report 9882289 (Version 1)
Quarter: 2014Q1

REPORT INFORMATION
  Report Type: Spontaneous
  Country: IT (occurrence: IT)
  Receive Date: 20140207
  Receipt Date: 20140207
  Transmission Date: 20141002
  Serious: Yes (Hospitalization)
  Sender: FDA-Public Use
  Company Number: IT-PFIZER INC-2014035470

PATIENT
  Sex: Male

DRUGS (1)
  1. RAMIPRIL [Suspect]
     Dosage: UNK

REACTIONS (3)
  - Anaphylactic shock [Recovered/Resolved]
  - Macroglossia [Recovered/Resolved]
  - Palatal oedema [Recovered/Resolved]
